FAERS Safety Report 17888851 (Version 1)
Quarter: 2020Q2

REPORT INFORMATION
  Report Type: Spontaneous
  Country: IT (occurrence: IT)
  Receive Date: 20200612
  Receipt Date: 20200612
  Transmission Date: 20200714
  Serious: Yes (Hospitalization)
  Sender: FDA-Public Use
  Company Number: IT-TEVA-2020-IT-1510564

PATIENT
  Age: 18 Year
  Sex: Male

DRUGS (1)
  1. AMOXICILLIN-CLAVULANATE 875 MG/125 MG [Suspect]
     Active Substance: AMOXICILLIN\CLAVULANATE POTASSIUM
     Indication: UPPER RESPIRATORY TRACT INFECTION
     Dosage: 2 DOSAGE FORMS DAILY; ONE FILM-COATED TABLET TWICE DAILY FOR 10 DAYS; 1DF = AMOXICILLIN 875MG + CLAV
     Route: 048

REACTIONS (2)
  - Colitis ischaemic [Recovered/Resolved]
  - Hypokalaemia [Recovered/Resolved]
